FAERS Safety Report 8185956-6 (Version None)
Quarter: 2012Q1

REPORT INFORMATION
  Report Type: 
  Country: None (occurrence: None)
  Receive Date: 20120305
  Receipt Date: 20120301
  Transmission Date: 20120608
  Serious: Yes (Life-Threatening, Hospitalization)
  Sender: FDA-Public Use
  Company Number: US-ASTRAZENECA-2012SE14433

PATIENT
  Age: 56 Year
  Sex: Female
  Weight: 31.8 kg

DRUGS (7)
  1. CELEXA [Concomitant]
  2. VANDETANIB [Suspect]
     Indication: THYROID CANCER
     Route: 048
     Dates: start: 20111001
  3. THYROID REPLACEMENT HORMONE [Concomitant]
  4. BLOOD PRESSURE MEDICATIONS [Concomitant]
  5. SIMVASTATIN [Concomitant]
  6. TINCTURE OF OPIUM [Concomitant]
  7. OCTREOTIDE ACETATE [Concomitant]

REACTIONS (7)
  - COMA [None]
  - PNEUMONIA [None]
  - HAEMORRHAGIC STROKE [None]
  - BLOOD PRESSURE INCREASED [None]
  - URINARY TRACT INFECTION [None]
  - SEPSIS [None]
  - LUNG INFECTION [None]
